FAERS Safety Report 9886580 (Version 1)
Quarter: 2014Q1

REPORT INFORMATION
  Report Type: Spontaneous
  Country: BR (occurrence: BR)
  Receive Date: 20140210
  Receipt Date: 20140210
  Transmission Date: 20141002
  Serious: Yes (Life-Threatening, Hospitalization, Other)
  Sender: FDA-Public Use
  Company Number: BR-ELI_LILLY_AND_COMPANY-BR201402001430

PATIENT
  Age: 17 Year
  Sex: Female
  Weight: 43 kg

DRUGS (3)
  1. HUMALOG [Suspect]
     Indication: TYPE 1 DIABETES MELLITUS
     Dosage: UNK UNK, PRN
     Route: 058
     Dates: start: 2009
  2. HUMULIN N [Suspect]
     Indication: TYPE 1 DIABETES MELLITUS
     Dosage: 30 IU, EACH MORNING
     Route: 058
     Dates: start: 2009, end: 20140117
  3. HUMULIN N [Suspect]
     Dosage: 15 IU, EACH EVENING
     Route: 058
     Dates: start: 2009, end: 20140117

REACTIONS (7)
  - Sepsis [Recovered/Resolved]
  - Pneumonia [Recovered/Resolved]
  - Coma [Recovered/Resolved]
  - Ketoacidosis [Recovered/Resolved]
  - Peripheral nerve lesion [Not Recovered/Not Resolved]
  - Blood pressure abnormal [Unknown]
  - Anaemia [Unknown]
